FAERS Safety Report 17631896 (Version 3)
Quarter: 2020Q2

REPORT INFORMATION
  Report Type: Spontaneous
  Country: JP (occurrence: JP)
  Receive Date: 20200406
  Receipt Date: 20200512
  Transmission Date: 20200713
  Serious: Yes (Other)
  Sender: FDA-Public Use
  Company Number: JP-PFIZER INC-2020136271

PATIENT
  Age: 12 Year
  Sex: Female
  Weight: 32 kg

DRUGS (10)
  1. METHOTREXATE 2.5MG [Suspect]
     Active Substance: METHOTREXATE
     Dosage: 15 MG, WEEKLY
     Route: 048
     Dates: start: 20190926, end: 20200403
  2. METHOTREXATE 2.5MG [Suspect]
     Active Substance: METHOTREXATE
     Dosage: 10 MG, WEEKLY
     Route: 048
     Dates: start: 20190214, end: 20190306
  3. FOLIAMIN [Concomitant]
     Active Substance: FOLIC ACID
     Dosage: 5 MG, WEEKLY
     Route: 048
     Dates: start: 20190214, end: 20190403
  4. RHEUMATREX [Concomitant]
     Active Substance: METHOTREXATE SODIUM
     Dosage: 2 MG, WEEKLY
     Route: 048
     Dates: start: 20190214, end: 20190306
  5. NAIXAN [NAPROXEN] [Concomitant]
     Active Substance: NAPROXEN
     Dosage: 200 MG, 2X/DAY
     Route: 048
     Dates: start: 20190306, end: 20190523
  6. TEPRENONE [Concomitant]
     Active Substance: TEPRENONE
     Dosage: 0.5 G, 2X/DAY
     Dates: start: 20190306, end: 20190523
  7. METHOTREXATE 2.5MG [Suspect]
     Active Substance: METHOTREXATE
     Dosage: 12.5 MG, WEEKLY
     Route: 048
     Dates: start: 20190306, end: 20190411
  8. METHOTREXATE 2.5MG [Suspect]
     Active Substance: METHOTREXATE
     Dosage: 14 MG, WEEKLY
     Route: 048
     Dates: start: 20190411, end: 20190725
  9. METHOTREXATE 2.5MG [Suspect]
     Active Substance: METHOTREXATE
     Dosage: 13.75 MG, WEEKLY
     Route: 048
     Dates: start: 20190725, end: 20190926
  10. HUMIRA [Concomitant]
     Active Substance: ADALIMUMAB
     Dosage: 40 MG, ONCE EVERY 2 WEEKS
     Route: 058
     Dates: start: 20190509

REACTIONS (4)
  - Optic neuropathy [Not Recovered/Not Resolved]
  - Optic neuritis [Unknown]
  - Papilloedema [Not Recovered/Not Resolved]
  - Visual acuity reduced [Recovered/Resolved]

NARRATIVE: CASE EVENT DATE: 20200326
